FAERS Safety Report 15749466 (Version 1)
Quarter: 2018Q4

REPORT INFORMATION
  Report Type: Spontaneous
  Country: ES (occurrence: ES)
  Receive Date: 20181221
  Receipt Date: 20181221
  Transmission Date: 20190205
  Serious: Yes (Death, Other)
  Sender: FDA-Public Use
  Company Number: ES-TEVA-2018-ES-989798

PATIENT
  Age: 56 Year
  Sex: Male

DRUGS (4)
  1. MIRTAZAPINA (2704A) [Interacting]
     Active Substance: MIRTAZAPINE
     Route: 048
     Dates: start: 2018, end: 20180920
  2. LEVOMEPROMAZINA (1839A) [Interacting]
     Active Substance: LEVOMEPROMAZINE
     Indication: AGITATION
     Route: 042
     Dates: start: 20180921, end: 20180921
  3. HALOPERIDOL (1693A) [Interacting]
     Active Substance: HALOPERIDOL
     Indication: AGITATION
     Route: 042
     Dates: start: 20180921, end: 20180921
  4. RISPERIDONA (7201A) [Suspect]
     Active Substance: RISPERIDONE
     Indication: SCHIZOPHRENIA
     Dosage: 9 MILLIGRAM DAILY;
     Route: 048
     Dates: start: 2018, end: 20180920

REACTIONS (3)
  - Cardio-respiratory arrest [Fatal]
  - Death [Fatal]
  - Drug interaction [Unknown]

NARRATIVE: CASE EVENT DATE: 20180921
